FAERS Safety Report 10990736 (Version 1)
Quarter: 2015Q1

REPORT INFORMATION
  Report Type: Spontaneous
  Country: US (occurrence: None)
  Receive Date: 20150326
  Receipt Date: 20150326
  Transmission Date: 20150721
  Serious: No
  Sender: FDA-Public Use
  Company Number: 1000073632

PATIENT
  Age: 26 Year
  Sex: Female

DRUGS (1)
  1. LINZESS [Suspect]
     Active Substance: LINACLOTIDE
     Indication: CONSTIPATION
     Dosage: HALF A CAPSULE
     Dates: start: 20141125, end: 20141128

REACTIONS (4)
  - Abdominal pain [None]
  - Intentional product misuse [None]
  - Eructation [None]
  - Hiccups [None]

NARRATIVE: CASE EVENT DATE: 201411
